FAERS Safety Report 18501673 (Version 2)
Quarter: 2022Q2

REPORT INFORMATION
  Report Type: Spontaneous
  Country: CH (occurrence: CH)
  Receive Date: 20201113
  Receipt Date: 20220608
  Transmission Date: 20220721
  Serious: Yes (Disabling, Other)
  Sender: FDA-Public Use
  Company Number: None

PATIENT
  Age: 54 Year
  Sex: Male

DRUGS (12)
  1. REMERON [Suspect]
     Active Substance: MIRTAZAPINE
     Dosage: 15 MILLIGRAM, QD
     Route: 048
  2. ISENTRESS [Interacting]
     Active Substance: RALTEGRAVIR POTASSIUM
     Indication: HIV infection
     Dosage: 400 MILLIGRAM, BID
     Route: 048
     Dates: start: 2013, end: 20200930
  3. KIVEXA [Suspect]
     Active Substance: ABACAVIR SULFATE\LAMIVUDINE
     Dosage: UNK
     Dates: start: 2013
  4. ATORVASTATIN [Interacting]
     Active Substance: ATORVASTATIN
     Indication: Dyslipidaemia
     Dosage: 10 MILLIGRAM
     Route: 048
     Dates: start: 201612, end: 20201005
  5. LERCANIDIPINE HYDROCHLORIDE [Interacting]
     Active Substance: LERCANIDIPINE HYDROCHLORIDE
     Indication: Hypertension
     Dosage: 10 MILLIGRAM
     Route: 048
  6. NEURONTIN [Suspect]
     Active Substance: GABAPENTIN
     Route: 048
     Dates: start: 20200921, end: 20200930
  7. QUETIAPINE FUMARATE [Suspect]
     Active Substance: QUETIAPINE FUMARATE
     Dosage: 200 MILLIGRAM
     Route: 048
  8. DAFALGAN [Suspect]
     Active Substance: ACETAMINOPHEN
     Dosage: UNK
     Route: 048
     Dates: start: 202007, end: 20201005
  9. TRAMADOL [Suspect]
     Active Substance: TRAMADOL
     Dosage: IF NECESSSARY
     Dates: start: 20200930, end: 20201005
  10. ASPIRIN [Concomitant]
     Active Substance: ASPIRIN
  11. TORADOL [Concomitant]
     Active Substance: KETOROLAC TROMETHAMINE
     Dates: start: 202007
  12. LYRICA [Concomitant]
     Active Substance: PREGABALIN
     Dates: end: 20200929

REACTIONS (4)
  - Rhabdomyolysis [Recovering/Resolving]
  - Blood creatine phosphokinase increased [Recovered/Resolved]
  - Myalgia [Recovering/Resolving]
  - Hepatic cytolysis [Recovered/Resolved]

NARRATIVE: CASE EVENT DATE: 20200901
